FAERS Safety Report 6982401-0 (Version None)
Quarter: 2010Q3

REPORT INFORMATION
  Report Type: 
  Country: None (occurrence: None)
  Receive Date: 20100914
  Receipt Date: 20100108
  Transmission Date: 20110219
  Serious: Yes (Other)
  Sender: FDA-Public Use
  Company Number: US-PFIZER INC-2010003871

PATIENT
  Sex: Female
  Weight: 74.376 kg

DRUGS (3)
  1. LYRICA [Suspect]
     Indication: POOR PERIPHERAL CIRCULATION
     Dosage: 50 MG, 1X/DAY
     Route: 048
     Dates: start: 20091207, end: 20100107
  2. LYRICA [Suspect]
     Indication: NEUROPATHY PERIPHERAL
  3. PLAVIX [Concomitant]
     Indication: POOR PERIPHERAL CIRCULATION
     Dosage: UNK

REACTIONS (4)
  - DRUG INEFFECTIVE [None]
  - INJURY [None]
  - PAIN IN EXTREMITY [None]
  - WEIGHT INCREASED [None]
